FAERS Safety Report 8438196-7 (Version None)
Quarter: 2012Q2

REPORT INFORMATION
  Report Type: 
  Country: None (occurrence: None)
  Receive Date: 20120614
  Receipt Date: 20120531
  Transmission Date: 20120825
  Serious: Yes (Other)
  Sender: FDA-Public Use
  Company Number: CHPA2012US011663

PATIENT
  Age: 57 Year
  Sex: Female

DRUGS (3)
  1. EXCEDRIN (MIGRAINE) [Suspect]
     Indication: HEADACHE
     Dosage: UNK, ONCE OR TWICE A WEEK
     Route: 048
  2. CARDIAC THERAPY [Concomitant]
     Indication: CARDIAC DISORDER
     Dosage: UNK, UNK
     Route: 048
  3. THYROID THERAPY [Concomitant]
     Indication: THYROID DISORDER
     Dosage: UNK, UNK
     Route: 048

REACTIONS (3)
  - COLITIS [None]
  - GASTRIC DISORDER [None]
  - PAIN [None]
